FAERS Safety Report 19774985 (Version 2)
Quarter: 2021Q3

REPORT INFORMATION
  Report Type: Spontaneous
  Country: US (occurrence: US)
  Receive Date: 20210901
  Receipt Date: 20210930
  Transmission Date: 20211014
  Serious: No
  Sender: FDA-Public Use
  Company Number: US-SA-2021SA287394

PATIENT
  Age: 48 Year
  Sex: Female

DRUGS (4)
  1. CELECOXIB. [Concomitant]
     Active Substance: CELECOXIB
  2. DUPIXENT [Suspect]
     Active Substance: DUPILUMAB
     Indication: ASTHMA
     Dosage: 300 MG, QOW
     Route: 058
     Dates: start: 20190726
  3. TRELEGY ELLIPTA [Concomitant]
     Active Substance: FLUTICASONE FUROATE\UMECLIDINIUM BROMIDE\VILANTEROL TRIFENATATE
  4. ASPRIN [Concomitant]
     Active Substance: ASPIRIN

REACTIONS (3)
  - Quality of life decreased [Unknown]
  - Stomatitis [Recovered/Resolved]
  - Product use issue [Unknown]

NARRATIVE: CASE EVENT DATE: 202107
